FAERS Safety Report 24352398 (Version 1)
Quarter: 2024Q3

REPORT INFORMATION
  Report Type: Report from Study
  Country: CN (occurrence: CN)
  Receive Date: 20240923
  Receipt Date: 20240923
  Transmission Date: 20241017
  Serious: No
  Sender: ROCHE
  Company Number: CN-ROCHE-3579424

PATIENT
  Sex: Female

DRUGS (6)
  1. TRASTUZUMAB [Suspect]
     Active Substance: TRASTUZUMAB
     Indication: Breast cancer
     Dosage: EACH ADMINISTRATION TIME LASTS FOR 1.5H, CONTINUOUS TREATMENT FOR 3 CYCLES, AND ONLY ONE DOSE IS ADM
     Route: 041
  2. CISPLATIN [Suspect]
     Active Substance: CISPLATIN
     Indication: Breast cancer
     Dosage: DAY 2 OF CHEMOTHERAPY, THIS TREATMENT REGIMEN WAS ADMINISTERED IN 21-DAY CYCLES FOR 3 CONSECUTIVE CY
     Route: 041
  3. PACLITAXEL [Suspect]
     Active Substance: PACLITAXEL
     Indication: Breast cancer
     Dosage: DAY 1 OF CHEMOTHERAPY, THIS TREATMENT REGIMEN WAS ADMINISTERED IN 21-DAY CYCLES FOR 3 CONSECUTIVE CY
     Route: 041
  4. DEXAMETHASONE [Concomitant]
     Active Substance: DEXAMETHASONE
     Dosage: ORAL 12H BEFORE CHEMOTHERAPY
     Route: 048
  5. DIPHENHYDRAMINE [Concomitant]
     Active Substance: DIPHENHYDRAMINE
     Route: 030
  6. CIMETIDINE [Concomitant]
     Active Substance: CIMETIDINE
     Route: 030

REACTIONS (3)
  - Gastrointestinal tract irritation [Unknown]
  - Hepatic function abnormal [Unknown]
  - Myelosuppression [Unknown]
